FAERS Safety Report 25633301 (Version 1)
Quarter: 2025Q3

REPORT INFORMATION
  Report Type: Spontaneous
  Country: EU (occurrence: EU)
  Receive Date: 20250801
  Receipt Date: 20250801
  Transmission Date: 20251021
  Serious: Yes (Death, Life-Threatening, Other)
  Sender: ROCHE
  Company Number: EU-ROCHE-10000346564

PATIENT
  Age: 64 Year
  Sex: Female

DRUGS (2)
  1. OBINUTUZUMAB [Suspect]
     Active Substance: OBINUTUZUMAB
     Indication: Diffuse large B-cell lymphoma recurrent
     Route: 065
  2. COLUMVI [Suspect]
     Active Substance: GLOFITAMAB-GXBM
     Indication: Diffuse large B-cell lymphoma recurrent
     Route: 065

REACTIONS (6)
  - Pyrexia [Unknown]
  - Vomiting [Unknown]
  - Somnolence [Unknown]
  - Intracranial mass [Unknown]
  - Immune effector cell-associated neurotoxicity syndrome [Unknown]
  - Death [Fatal]
